FAERS Safety Report 18750832 (Version 3)
Quarter: 2021Q1

REPORT INFORMATION
  Report Type: Spontaneous
  Country: TH (occurrence: TH)
  Receive Date: 20210118
  Receipt Date: 20210301
  Transmission Date: 20210419
  Serious: Yes (Other)
  Sender: FDA-Public Use
  Company Number: TH-AMGEN-THASP2021005581

PATIENT
  Age: 60 Year
  Sex: Female

DRUGS (3)
  1. MVASI [Suspect]
     Active Substance: BEVACIZUMAB-AWWB
     Indication: OVARIAN CANCER
     Dosage: 7.5 MILLIGRAM/KILOGRAM, Q2WK
     Route: 042
     Dates: start: 20201201, end: 20210112
  2. PACLITAXEL. [Concomitant]
     Active Substance: PACLITAXEL
     Dosage: UNK
     Dates: start: 20201201
  3. CARBOPLATIN. [Concomitant]
     Active Substance: CARBOPLATIN
     Dosage: UNK
     Dates: start: 20201201

REACTIONS (2)
  - Ovarian cancer [Unknown]
  - Off label use [Unknown]

NARRATIVE: CASE EVENT DATE: 20201201
